FAERS Safety Report 21415207 (Version 7)
Quarter: 2023Q2

REPORT INFORMATION
  Report Type: Report from Study
  Country: PL (occurrence: PL)
  Receive Date: 20221006
  Receipt Date: 20230623
  Transmission Date: 20230722
  Serious: Yes (Other)
  Sender: FDA-Public Use
  Company Number: PL-NOVARTISPH-NVSC2022PL220933

PATIENT
  Age: 41 Year
  Sex: Female
  Weight: 44.8 kg

DRUGS (6)
  1. ALPELISIB [Suspect]
     Active Substance: ALPELISIB
     Indication: Triple negative breast cancer
     Dosage: 300 MG
     Route: 042
     Dates: start: 20211228, end: 20221122
  2. ALPELISIB [Suspect]
     Active Substance: ALPELISIB
     Dosage: 250 MG, CONT
     Route: 048
     Dates: start: 20221122
  3. PACLITAXEL [Suspect]
     Active Substance: PACLITAXEL
     Indication: Triple negative breast cancer
     Dosage: 150.9 MG, ONCE
     Route: 042
     Dates: start: 20211228, end: 20220916
  4. PACLITAXEL [Suspect]
     Active Substance: PACLITAXEL
     Dosage: 64 MG, CONT
     Route: 042
     Dates: start: 20220922
  5. UNSPECIFIED INGREDIENT [Suspect]
     Active Substance: UNSPECIFIED INGREDIENT
     Indication: Triple negative breast cancer
     Dosage: NO TREATMENT
     Route: 065
  6. CETIRIZINE [Concomitant]
     Active Substance: CETIRIZINE HYDROCHLORIDE
     Indication: Prophylaxis
     Dosage: UNK
     Route: 065
     Dates: start: 20211228

REACTIONS (2)
  - Haematochezia [Recovering/Resolving]
  - Gastritis haemorrhagic [Recovered/Resolved]

NARRATIVE: CASE EVENT DATE: 20220927
